FAERS Safety Report 16990733 (Version 3)
Quarter: 2021Q1

REPORT INFORMATION
  Report Type: Spontaneous
  Country: DE (occurrence: DE)
  Receive Date: 20191104
  Receipt Date: 20210126
  Transmission Date: 20210419
  Serious: Yes (Other)
  Sender: FDA-Public Use
  Company Number: DE-ALLERGAN-1943657US

PATIENT
  Sex: Male

DRUGS (2)
  1. OFLOXACIN UNK [Suspect]
     Active Substance: OFLOXACIN
     Indication: OCULAR HYPERAEMIA
  2. OFLOXACIN UNK [Suspect]
     Active Substance: OFLOXACIN
     Indication: EYE INFLAMMATION
     Dosage: STRENGTH 0.3%
     Route: 065

REACTIONS (3)
  - Corneal abrasion [Unknown]
  - Vitreous injury [Unknown]
  - Product deposit [Unknown]

NARRATIVE: CASE EVENT DATE: 201906
